FAERS Safety Report 12101741 (Version 7)
Quarter: 2016Q2

REPORT INFORMATION
  Report Type: Spontaneous
  Country: US (occurrence: US)
  Receive Date: 20160222
  Receipt Date: 20160627
  Transmission Date: 20160815
  Serious: Yes (Hospitalization, Other)
  Sender: FDA-Public Use
  Company Number: US-PFIZER INC-2016093244

PATIENT
  Age: 89 Year
  Sex: Male
  Weight: 60 kg

DRUGS (16)
  1. LOSARTAN. [Suspect]
     Active Substance: LOSARTAN
     Indication: HYPERTENSION
  2. ELIQUIS [Suspect]
     Active Substance: APIXABAN
     Indication: CEREBROVASCULAR ACCIDENT PROPHYLAXIS
     Dosage: 2.5 MG, 2X/DAY
     Route: 048
     Dates: start: 20150925
  3. ATORVASTATIN CALCIUM. [Suspect]
     Active Substance: ATORVASTATIN CALCIUM
     Indication: BLOOD CHOLESTEROL INCREASED
     Dosage: 40 MG, 1X/DAY
     Route: 048
     Dates: start: 20120725
  4. LEVOTHYROXINE SODIUM. [Suspect]
     Active Substance: LEVOTHYROXINE SODIUM
     Indication: HYPOTHYROIDISM
     Dosage: 88 UG, QD
  5. ASPIRIN. [Concomitant]
     Active Substance: ASPIRIN
     Indication: ANTICOAGULANT THERAPY
     Dosage: 81 MG, 1X/DAY
     Route: 048
  6. LUTEIN [Concomitant]
     Active Substance: LUTEIN
     Dosage: 40 MG, UNK
  7. UBIQUINOL CO Q10 [Concomitant]
     Dosage: 100 MG, 1X/DAY
     Route: 065
  8. ZEAXANTHIN [Concomitant]
     Active Substance: ZEAXANTHIN
     Dosage: 2 MG, 1X/DAY
  9. AMIODARONE ZYDUS [Suspect]
     Active Substance: AMIODARONE
     Indication: ATRIAL FIBRILLATION
  10. ATORVASTATIN CALCIUM. [Suspect]
     Active Substance: ATORVASTATIN CALCIUM
     Indication: LOW DENSITY LIPOPROTEIN INCREASED
  11. ELIQUIS [Suspect]
     Active Substance: APIXABAN
     Indication: BLOOD DISORDER
     Dosage: 2.5 MG, 1X/DAY
     Route: 048
     Dates: start: 201509
  12. LOSARTAN. [Suspect]
     Active Substance: LOSARTAN
     Indication: BLOOD PRESSURE ABNORMAL
     Dosage: 25 MG, 1X/DAY
     Route: 048
     Dates: start: 2012
  13. AMIODARONE ZYDUS [Suspect]
     Active Substance: AMIODARONE
     Indication: TACHYCARDIA
     Dosage: 200MG TABLET TAKE HALF A TABLET BY MOUTH ONCE A DAY
     Route: 048
     Dates: start: 20150925
  14. SELENIUM [Concomitant]
     Active Substance: SELENIUM
     Dosage: 50 UG, 1X/DAY
  15. PROBIOTICS [Concomitant]
     Active Substance: PROBIOTICS NOS
     Indication: CLOSTRIDIUM DIFFICILE INFECTION
     Dosage: 16 STRAIN ONCE DAILY
  16. COENZYME Q10 [Concomitant]
     Active Substance: UBIDECARENONE

REACTIONS (5)
  - Lip swelling [Recovered/Resolved]
  - Off label use [Unknown]
  - Atrial fibrillation [Recovered/Resolved]
  - Haemorrhage [Recovering/Resolving]
  - Chapped lips [Recovered/Resolved]

NARRATIVE: CASE EVENT DATE: 20150924
